FAERS Safety Report 9840131 (Version 1)
Quarter: 2013Q4

REPORT INFORMATION
  Report Type: Spontaneous
  Country: US (occurrence: None)
  Receive Date: 20131209
  Receipt Date: 20131209
  Transmission Date: 20140711
  Serious: Yes (Other)
  Sender: FDA-Public Use
  Company Number: ALL1-2012-05725

PATIENT
  Age: 51 Year
  Sex: Female
  Weight: 59 kg

DRUGS (2)
  1. MAS (MIXED AMPHETAMINE SALTS) [Suspect]
     Indication: ATTENTION DEFICIT/HYPERACTIVITY DISORDER
     Dosage: 30MG, OTHER (ON AND OFF), ORAL
     Route: 048
     Dates: end: 20121113
  2. WELLBUTRIN [Suspect]
     Dosage: 150MG, 1 X/DAY QD, ORAL
     Route: 048

REACTIONS (11)
  - Depression [None]
  - Stomatitis [None]
  - Hypersomnia [None]
  - Hyperphagia [None]
  - Dysgeusia [None]
  - Asthenia [None]
  - Fatigue [None]
  - Anxiety [None]
  - Abdominal discomfort [None]
  - Inappropriate schedule of drug administration [None]
  - Off label use [None]
